FAERS Safety Report 6148832-6 (Version None)
Quarter: 2009Q2

REPORT INFORMATION
  Report Type: 
  Country: None (occurrence: None)
  Receive Date: 20090406
  Receipt Date: 20090324
  Transmission Date: 20091009
  Serious: Yes (Death)
  Sender: FDA-Public Use
  Company Number: 2009AP001222

PATIENT
  Age: 56 Year
  Sex: Male

DRUGS (2)
  1. CITALOPRAM HYDROBROMIDE [Suspect]
     Indication: DEPRESSION
     Dosage: 20 MG;PO ; 40 MG;PO
     Route: 048
     Dates: start: 20090102
  2. CITALOPRAM HYDROBROMIDE [Suspect]
     Indication: DEPRESSION
     Dosage: 20 MG;PO ; 40 MG;PO
     Route: 048
     Dates: start: 20090123

REACTIONS (1)
  - COMPLETED SUICIDE [None]
